FAERS Safety Report 26082478 (Version 1)
Quarter: 2025Q4

REPORT INFORMATION
  Report Type: Spontaneous
  Country: EU (occurrence: EU)
  Receive Date: 20251124
  Receipt Date: 20251124
  Transmission Date: 20260118
  Serious: Yes (Other)
  Sender: TEVA
  Company Number: None

PATIENT
  Age: 44 Year
  Sex: Female
  Weight: 73 kg

DRUGS (1)
  1. ETHINYL ESTRADIOL\LEVONORGESTREL [Suspect]
     Active Substance: ETHINYL ESTRADIOL\LEVONORGESTREL
     Indication: Menopause
     Dosage: 1 PIECE ONCE A DAY; 30/150UG / BRAND NAME NOT SPECIFIED
     Route: 048
     Dates: start: 20250915, end: 20251022

REACTIONS (2)
  - Suicidal ideation [Recovered/Resolved]
  - Symptom recurrence [Unknown]
